FAERS Safety Report 23983298 (Version 1)
Quarter: 2024Q2

REPORT INFORMATION
  Report Type: Report from Study
  Country: AU (occurrence: AU)
  Receive Date: 20240617
  Receipt Date: 20240617
  Transmission Date: 20240716
  Serious: Yes (Hospitalization, Disabling)
  Sender: FDA-Public Use
  Company Number: AU-SAMSUNG BIOEPIS-SB-2024-17568

PATIENT
  Sex: Male

DRUGS (1)
  1. ETANERCEPT [Suspect]
     Active Substance: ETANERCEPT
     Indication: Rheumatoid arthritis
     Route: 065
     Dates: end: 202405

REACTIONS (7)
  - Back pain [Unknown]
  - Fall [Unknown]
  - Transient ischaemic attack [Unknown]
  - Memory impairment [Unknown]
  - Balance disorder [Unknown]
  - Respiratory syncytial virus infection [Unknown]
  - Drug ineffective [Unknown]
